FAERS Safety Report 6829896-0 (Version None)
Quarter: 2010Q3

REPORT INFORMATION
  Report Type: 
  Country: None (occurrence: None)
  Receive Date: 20100711
  Receipt Date: 20100329
  Transmission Date: 20110219
  Serious: No
  Sender: FDA-Public Use
  Company Number: US-ALLERGAN-1004182US

PATIENT
  Age: 31 Year
  Sex: Female

DRUGS (2)
  1. LATISSE [Suspect]
     Indication: GROWTH OF EYELASHES
  2. VISINE EYE DROPS [Concomitant]

REACTIONS (1)
  - IRIS HYPERPIGMENTATION [None]
